FAERS Safety Report 6753425-3 (Version None)
Quarter: 2010Q2

REPORT INFORMATION
  Report Type: 
  Country: None (occurrence: None)
  Receive Date: 20100520
  Receipt Date: 20091203
  Transmission Date: 20101027
  Serious: Yes (Other)
  Sender: FDA-Public Use
  Company Number: 2009301945

PATIENT
  Age: 74 Year
  Sex: Female

DRUGS (9)
  1. PROVERA [Suspect]
     Indication: HORMONE REPLACEMENT THERAPY
     Dosage: 10 MG, ORAL
     Route: 048
     Dates: start: 19940801, end: 19951201
  2. PREMARIN [Suspect]
     Indication: HORMONE REPLACEMENT THERAPY
     Dosage: 0.625 MG
     Dates: start: 19940801, end: 19951201
  3. PREMPRO [Suspect]
     Indication: HORMONE REPLACEMENT THERAPY
     Dosage: 0.625/2.5MG
     Dates: start: 19951201, end: 20000501
  4. ASPIRIN [Concomitant]
  5. LOTREL [Concomitant]
  6. HYDROCHLOROTHIAZIDE [Concomitant]
  7. FLUOXETINE [Concomitant]
  8. WELLBUTRIN [Concomitant]
  9. BUPROPION HCL [Concomitant]

REACTIONS (1)
  - BREAST CANCER FEMALE [None]
